FAERS Safety Report 16049600 (Version 4)
Quarter: 2019Q3

REPORT INFORMATION
  Report Type: Spontaneous
  Country: JP (occurrence: JP)
  Receive Date: 20190307
  Receipt Date: 20190717
  Transmission Date: 20191004
  Serious: Yes (Death, Life-Threatening)
  Sender: FDA-Public Use
  Company Number: JP-ELI_LILLY_AND_COMPANY-JP201903001225

PATIENT
  Sex: Female
  Weight: 55 kg

DRUGS (9)
  1. OXYCODONE [Concomitant]
     Active Substance: OXYCODONE
     Indication: CANCER PAIN
     Dosage: 80 MG, DAILY
     Route: 048
     Dates: start: 20180803, end: 20190215
  2. LOXOPROFEN [Concomitant]
     Active Substance: LOXOPROFEN
     Dosage: 1 DOSAGE FORM, TID
     Route: 048
  3. RANMARK [Concomitant]
     Active Substance: DENOSUMAB
     Indication: METASTASES TO BONE
     Dosage: 120 MG, CYCLICAL
     Route: 058
     Dates: start: 20150814, end: 20190215
  4. VERZENIO [Suspect]
     Active Substance: ABEMACICLIB
     Indication: BREAST CANCER STAGE IV
     Dosage: 150 MG, BID
     Route: 048
     Dates: start: 20190118, end: 20190221
  5. SENNOSIDES A+B CALCIUM [Concomitant]
     Active Substance: SENNOSIDES A AND B
     Route: 065
  6. CALCIUM LACTATE [Concomitant]
     Active Substance: CALCIUM LACTATE
     Route: 065
  7. FASLODEX [Concomitant]
     Active Substance: FULVESTRANT
     Indication: BREAST CANCER STAGE IV
     Dosage: 500 MG, CYCLICAL
     Route: 030
     Dates: start: 20190118, end: 20190215
  8. AMLODIPINE [Concomitant]
     Active Substance: AMLODIPINE BESYLATE
     Route: 065
  9. NEXIUM [Concomitant]
     Active Substance: ESOMEPRAZOLE MAGNESIUM
     Route: 065

REACTIONS (5)
  - Hypoxic-ischaemic encephalopathy [Fatal]
  - Decreased appetite [Unknown]
  - Acute respiratory distress syndrome [Not Recovered/Not Resolved]
  - Interstitial lung disease [Fatal]
  - Headache [Unknown]

NARRATIVE: CASE EVENT DATE: 20190221
